FAERS Safety Report 11990441 (Version 2)
Quarter: 2016Q4

REPORT INFORMATION
  Report Type: Report from Study
  Country: ZA (occurrence: ZA)
  Receive Date: 20160202
  Receipt Date: 20161024
  Transmission Date: 20170206
  Serious: Yes (Hospitalization)
  Sender: FDA-Public Use
  Company Number: ZA-BAYER-2016-015641

PATIENT
  Age: 73 Year
  Sex: Male
  Weight: 78.7 kg

DRUGS (4)
  1. STUDY MED NOT GIVEN (15786) [Suspect]
     Active Substance: INVESTIGATIONAL PRODUCT
     Indication: PERIPHERAL ARTERIAL OCCLUSIVE DISEASE
  2. STUDY MED NOT GIVEN (15786) [Suspect]
     Active Substance: INVESTIGATIONAL PRODUCT
     Indication: CARDIOVASCULAR EVENT PROPHYLAXIS
     Dosage: UNK
     Route: 048
     Dates: start: 20140807
  3. STUDY MED NOT GIVEN (15786) [Suspect]
     Active Substance: INVESTIGATIONAL PRODUCT
     Indication: CORONARY ARTERY DISEASE
  4. ACETYLSALICYLIC ACID({=100 MG) [Suspect]
     Active Substance: ASPIRIN
     Dosage: UNK
     Dates: start: 20140909

REACTIONS (1)
  - Anaemia [Recovered/Resolved]

NARRATIVE: CASE EVENT DATE: 20140812
